FAERS Safety Report 5074914-6 (Version None)
Quarter: 2006Q3

REPORT INFORMATION
  Report Type: 
  Country: None (occurrence: None)
  Receive Date: 20060809
  Receipt Date: 20060519
  Transmission Date: 20061208
  Serious: Yes (Hospitalization)
  Sender: FDA-Public Use
  Company Number: PHEH2006US06747

PATIENT
  Age: 57 Year
  Sex: Male
  Weight: 137 kg

DRUGS (7)
  1. EXJADE [Suspect]
     Indication: HAEMOCHROMATOSIS
     Dosage: 300 MG, QD
     Route: 048
     Dates: start: 20060505, end: 20060514
  2. METFORMIN HCL [Concomitant]
     Dosage: 850 MG, BID
     Route: 048
  3. LISINOPRIL [Concomitant]
     Dosage: 40 MG, QD
     Route: 048
  4. GEMFIBROZIL [Concomitant]
     Dosage: 600 MG, BID
     Route: 048
  5. ZOCOR [Concomitant]
     Dosage: 40 MG, QD
     Route: 048
  6. ASPIRIN [Concomitant]
     Dosage: 81 MG, QD
     Route: 048
  7. ADVAIR DISKUS 100/50 [Concomitant]
     Dosage: 205/50MG BID

REACTIONS (9)
  - ALANINE AMINOTRANSFERASE INCREASED [None]
  - AMMONIA INCREASED [None]
  - ASPARTATE AMINOTRANSFERASE INCREASED [None]
  - BLOOD BILIRUBIN INCREASED [None]
  - CONFUSIONAL STATE [None]
  - LETHARGY [None]
  - MENTAL STATUS CHANGES [None]
  - NAUSEA [None]
  - VOMITING [None]
